FAERS Safety Report 13688769 (Version 1)
Quarter: 2017Q2

REPORT INFORMATION
  Report Type: Report from Study
  Country: US (occurrence: US)
  Receive Date: 20170626
  Receipt Date: 20170626
  Transmission Date: 20170830
  Serious: Yes (Other)
  Sender: FDA-Public Use
  Company Number: US-BIOGEN-2017BI00422097

PATIENT
  Age: 54 Year
  Sex: Female
  Weight: 49.94 kg

DRUGS (1)
  1. TECFIDERA [Suspect]
     Active Substance: DIMETHYL FUMARATE
     Indication: MULTIPLE SCLEROSIS
     Dosage: MAITNENANCE DOSE
     Route: 048
     Dates: start: 20150815

REACTIONS (1)
  - Blindness unilateral [Recovered/Resolved with Sequelae]

NARRATIVE: CASE EVENT DATE: 20170514
